FAERS Safety Report 24562759 (Version 1)
Quarter: 2024Q4

REPORT INFORMATION
  Report Type: Spontaneous
  Country: US (occurrence: US)
  Receive Date: 20241029
  Receipt Date: 20241029
  Transmission Date: 20250115
  Serious: Yes (Other)
  Sender: BAUSCH AND LOMB
  Company Number: US-BAUSCHBL-2024BNL036348

PATIENT
  Sex: Male

DRUGS (2)
  1. XIIDRA [Suspect]
     Active Substance: LIFITEGRAST
     Indication: Product used for unknown indication
     Route: 065
  2. XIIDRA [Suspect]
     Active Substance: LIFITEGRAST
     Route: 065

REACTIONS (4)
  - Cataract operation [Unknown]
  - Intentional dose omission [Unknown]
  - Intentional product use issue [Unknown]
  - Multiple use of single-use product [Unknown]
